FAERS Safety Report 24059171 (Version 2)
Quarter: 2024Q3

REPORT INFORMATION
  Report Type: Report from Study
  Country: CL (occurrence: CL)
  Receive Date: 20240708
  Receipt Date: 20240729
  Transmission Date: 20241017
  Serious: No
  Sender: ROCHE
  Company Number: CL-ROCHE-10000010077

PATIENT
  Age: 39 Year
  Sex: Male
  Weight: 76.0 kg

DRUGS (14)
  1. OCRELIZUMAB [Suspect]
     Active Substance: OCRELIZUMAB
     Indication: Multiple sclerosis
     Route: 042
     Dates: start: 20210104
  2. MOVIGIL [Concomitant]
     Indication: Narcolepsy
     Dosage: 1 TABLET A DAY. 2 TABLETS IN CASE OF HAVING A LOT OF NARCOLEPSIA
     Route: 048
     Dates: start: 2020
  3. LANSOPRAZOLE [Concomitant]
     Active Substance: LANSOPRAZOLE
     Route: 048
     Dates: start: 2022
  4. TAMSULOSIN [Concomitant]
     Active Substance: TAMSULOSIN
     Indication: Neurogenic bladder
     Dosage: FREQUENCY WAS NOT REPORTED?2 PILLS AT NIGHT
     Route: 048
     Dates: start: 2023
  5. BACLOFEN [Concomitant]
     Active Substance: BACLOFEN
     Dosage: 6 TABLETS AT NIGHT
     Route: 048
     Dates: start: 2020
  6. PREGABALIN [Concomitant]
     Active Substance: PREGABALIN
     Indication: Pain
     Dosage: HALF A 75 MG TABLET, SOS. FREQUENCY WAS NOT REPORTED
     Route: 048
     Dates: start: 20240624
  7. IRON [Concomitant]
     Active Substance: IRON
     Dosage: DOSE AND FREQUENCY WERE NOT REPORTED
     Route: 048
     Dates: start: 2022
  8. VITAMIN B12 [Concomitant]
     Active Substance: CYANOCOBALAMIN
     Indication: Nutritional supplementation
     Dosage: DOSE WAS NOT REPORTED
     Route: 048
     Dates: start: 2022
  9. VITAMIN D [Concomitant]
     Active Substance: VITAMIN D NOS
     Indication: Nutritional supplementation
     Dosage: DOSE WAS NOT REPORTED
     Route: 048
     Dates: start: 2022
  10. CELECOXIB [Concomitant]
     Active Substance: CELECOXIB
     Indication: Myalgia
     Route: 048
     Dates: start: 202402
  11. DALFAMPRIDINE [Concomitant]
     Active Substance: DALFAMPRIDINE
     Dosage: DOSE WAS NOT REPORTED?2 PILLS EVERY 12 HOURS
     Route: 048
     Dates: start: 202405
  12. BUPROPION [Concomitant]
     Active Substance: BUPROPION
     Route: 048
     Dates: start: 2024
  13. IRON [Concomitant]
     Active Substance: IRON
     Indication: Nutritional supplementation
     Dosage: DOSE WAS NOT REPORTED
     Route: 048
     Dates: start: 2022
  14. OMEGA 3 [Concomitant]
     Active Substance: CAPSAICIN
     Dosage: DOSE WAS NOT REPORTED
     Dates: start: 2022

REACTIONS (8)
  - Feeling abnormal [Not Recovered/Not Resolved]
  - Pain [Not Recovered/Not Resolved]
  - Muscle spasticity [Not Recovered/Not Resolved]
  - Influenza [Recovered/Resolved]
  - Multiple sclerosis [Not Recovered/Not Resolved]
  - Fungal foot infection [Not Recovered/Not Resolved]
  - Muscle contracture [Unknown]
  - Gait disturbance [Not Recovered/Not Resolved]

NARRATIVE: CASE EVENT DATE: 20230101
